FAERS Safety Report 9275801 (Version 1)
Quarter: 2012Q4

REPORT INFORMATION
  Report Type: Spontaneous
  Country: IT (occurrence: None)
  Receive Date: 20121109
  Receipt Date: 20121109
  Transmission Date: 20130627
  Serious: Yes (Death)
  Sender: FDA-Public Use
  Company Number: 2011S1000843

PATIENT
  Age: 76 Year
  Sex: Male
  Weight: 55 kg

DRUGS (1)
  1. CUBICIN [Suspect]
     Indication: DEVICE RELATED INFECTION
     Route: 042

REACTIONS (12)
  - Colon cancer [None]
  - Renal failure acute [None]
  - Pneumothorax [None]
  - Procedural complication [None]
  - Multi-organ failure [None]
  - Implantable defibrillator insertion [None]
  - Endocarditis [None]
  - Renal failure chronic [None]
  - Diabetes mellitus [None]
  - Toxic epidermal necrolysis [None]
  - Disease complication [None]
  - Myocardial ischaemia [None]
